FAERS Safety Report 7933911-0 (Version None)
Quarter: 2011Q4

REPORT INFORMATION
  Report Type: 
  Country: None (occurrence: None)
  Receive Date: 20111118
  Receipt Date: 20111108
  Transmission Date: 20120403
  Serious: Yes (Hospitalization)
  Sender: FDA-Public Use
  Company Number: TCI2011A05842

PATIENT
  Age: 94 Year
  Sex: Female

DRUGS (9)
  1. MARZULENE-S (LEVOGLUTAMIDE, AZULENE, SODIUM GUALENATE) [Concomitant]
  2. TORSEMIDE [Concomitant]
  3. TSUMURA HACHIMIJIO-GAN (HERBAL EXTRACT NOS) [Concomitant]
  4. EPADEL (ETHYL ICOSAPENTATE) [Concomitant]
  5. LYRICA [Concomitant]
  6. FALKEN (FLURBIPROFEN) [Concomitant]
  7. ROZEREM [Suspect]
     Indication: INSOMNIA
     Dosage: 8 MG (8 MG, 1 IN 1 D), PER ORAL
     Route: 048
     Dates: start: 20101028, end: 20111028
  8. TANATRIL (IMIDAPRIL HYDROCHLORIDE) [Concomitant]
  9. AMLODIPINE [Concomitant]

REACTIONS (12)
  - DIZZINESS [None]
  - DYSARTHRIA [None]
  - ABASIA [None]
  - BLOOD PRESSURE DECREASED [None]
  - BONE PAIN [None]
  - MUSCULAR WEAKNESS [None]
  - SOMNOLENCE [None]
  - INCORRECT DOSE ADMINISTERED [None]
  - DEPRESSED LEVEL OF CONSCIOUSNESS [None]
  - CONTUSION [None]
  - FALL [None]
  - EXCORIATION [None]
